FAERS Safety Report 10418677 (Version 1)
Quarter: 2014Q3

REPORT INFORMATION
  Report Type: Spontaneous
  Country: US (occurrence: US)
  Receive Date: 20140829
  Receipt Date: 20140829
  Transmission Date: 20150326
  Serious: No
  Sender: FDA-Public Use
  Company Number: US-B.I. PHARMACEUTICALS,INC./RIDGEFIELD-2014-BI-40196BP

PATIENT
  Sex: Male
  Weight: 90.72 kg

DRUGS (4)
  1. LYRICA [Concomitant]
     Active Substance: PREGABALIN
     Indication: PAIN IN EXTREMITY
     Dosage: 50 MG
     Route: 048
  2. NORTRIPTYLINE [Concomitant]
     Active Substance: NORTRIPTYLINE
     Indication: DEPRESSION
     Dosage: 25 MG
     Route: 048
     Dates: start: 1997
  3. VALIUM [Concomitant]
     Active Substance: DIAZEPAM
     Indication: ANXIETY
     Dosage: 5 MG
     Route: 048
     Dates: start: 1980
  4. COMBIVENT [Suspect]
     Active Substance: ALBUTEROL SULFATE\IPRATROPIUM BROMIDE
     Indication: HYPERSENSITIVITY
     Dosage: DOSE PER APPLICATION: 18 MCG / 103 MCG; 2 PUFFS
     Route: 055
     Dates: start: 1996, end: 201406

REACTIONS (10)
  - Fall [Recovered/Resolved]
  - Limb discomfort [Not Recovered/Not Resolved]
  - Fractured coccyx [Recovered/Resolved]
  - Peripheral artery stenosis [Not Recovered/Not Resolved]
  - Limb injury [Not Recovered/Not Resolved]
  - Heart rate increased [Not Recovered/Not Resolved]
  - Off label use [Unknown]
  - Muscle atrophy [Not Recovered/Not Resolved]
  - Cataract [Not Recovered/Not Resolved]
  - Pulmonary artery stenosis [Recovered/Resolved]

NARRATIVE: CASE EVENT DATE: 1996
